FAERS Safety Report 21083577 (Version 3)
Quarter: 2022Q3

REPORT INFORMATION
  Report Type: Spontaneous
  Country: GB (occurrence: GB)
  Receive Date: 20220714
  Receipt Date: 20220801
  Transmission Date: 20221027
  Serious: Yes (Hospitalization, Other)
  Sender: FDA-Public Use
  Company Number: GB-TAKEDA-2022TUS012901

PATIENT
  Sex: Female

DRUGS (3)
  1. REVLIMID [Suspect]
     Active Substance: LENALIDOMIDE
     Indication: Plasma cell myeloma
     Dosage: UNK
     Route: 065
     Dates: end: 20220630
  2. NINLARO [Suspect]
     Active Substance: IXAZOMIB CITRATE
     Indication: Plasma cell myeloma
     Dosage: 3 MILLIGRAM;
     Route: 048
     Dates: start: 20220126, end: 20220630
  3. DEXAMETHASONE [Suspect]
     Active Substance: DEXAMETHASONE
     Indication: Plasma cell myeloma
     Dates: end: 20220630

REACTIONS (21)
  - Oxygen saturation decreased [Unknown]
  - Fall [Unknown]
  - Blood pressure abnormal [Unknown]
  - Heart rate abnormal [Unknown]
  - Plasma cell myeloma [Unknown]
  - Dyspepsia [Recovering/Resolving]
  - Musculoskeletal chest pain [Unknown]
  - Oral herpes [Recovering/Resolving]
  - Haemoglobin abnormal [Recovered/Resolved]
  - Platelet count abnormal [Recovered/Resolved]
  - Neutrophil count abnormal [Recovered/Resolved]
  - Muscle spasms [Recovering/Resolving]
  - Fatigue [Recovering/Resolving]
  - Constipation [Recovering/Resolving]
  - Nausea [Recovering/Resolving]
  - Back pain [Unknown]
  - Pallor [Unknown]
  - Visual impairment [Unknown]
  - Bone pain [Unknown]
  - Mobility decreased [Unknown]
  - Product dose omission issue [Unknown]

NARRATIVE: CASE EVENT DATE: 20220323
